FAERS Safety Report 4319948-1 (Version None)
Quarter: 2004Q1

REPORT INFORMATION
  Report Type: 
  Country: None (occurrence: None)
  Receive Date: 20040316
  Receipt Date: 20040309
  Transmission Date: 20041129
  Serious: Yes (Other)
  Sender: FDA-Public Use
  Company Number: 2004-03-0712

PATIENT
  Age: 88 Year
  Sex: Male

DRUGS (4)
  1. ALBUTEROL [Suspect]
     Indication: EMPHYSEMA
     Dosage: 2 PUFFS QD INHALATION
     Route: 055
  2. ALBUTEROL SULFATE [Suspect]
     Indication: EMPHYSEMA
     Dosage: INHALATION
     Route: 055
  3. STEROIDS (NOS) [Concomitant]
  4. PREDNISONE [Concomitant]

REACTIONS (1)
  - HALLUCINATION [None]
